FAERS Safety Report 17158651 (Version 1)
Quarter: 2019Q4

REPORT INFORMATION
  Report Type: Spontaneous
  Country: DE (occurrence: DE)
  Receive Date: 20191216
  Receipt Date: 20191216
  Transmission Date: 20200122
  Serious: Yes (Other)
  Sender: FDA-Public Use
  Company Number: DE-TEVA-2019-DE-1150246

PATIENT
  Sex: Male

DRUGS (1)
  1. AMILORID COMP 5 /50 MG [Suspect]
     Active Substance: AMILORIDE HYDROCHLORIDE\HYDROCHLOROTHIAZIDE
     Indication: HYPERTENSION
     Dosage: 1 DF CONTAINS: AMILORIDE AND HYDROCHLOROTHIAZIDE
     Route: 048
     Dates: start: 201005, end: 20191006

REACTIONS (1)
  - Skin cancer [Unknown]
